FAERS Safety Report 9690376 (Version 3)
Quarter: 2014Q1

REPORT INFORMATION
  Report Type: Not Available
  Country: US (occurrence: US)
  Receive Date: 20131115
  Receipt Date: 20140129
  Transmission Date: 20141002
  Serious: Yes (Other)
  Sender: FDA-Public Use
  Company Number: US-LUPIN PHARMACEUTICALS INC.-E2B_00000287

PATIENT
  Sex: Male
  Weight: 90.8 kg

DRUGS (5)
  1. LEVETIRACETAM TABLETS 500MG (500 MILLIGRAM) (LEVETIRACETAM) [Suspect]
     Indication: EPILEPSY
  2. LEVETIRACETAM TABLETS 500MG (500 MILLIGRAM) (LEVETIRACETAM) [Suspect]
     Dates: end: 201008
  3. LEVETIRACETAM TABLETS 500MG (500 MILLIGRAM) (LEVETIRACETAM) [Suspect]
     Indication: EPILEPSY
     Dates: end: 201008
  4. LEVETIRACETAM TABLETS 500MG (500 MILLIGRAM) (LEVETIRACETAM) [Suspect]
     Dates: end: 2011
  5. ZONEGRAN [Concomitant]
     Indication: EPILEPSY

REACTIONS (1)
  - Suicidal ideation [Unknown]
